FAERS Safety Report 23146216 (Version 1)
Quarter: 2023Q4

REPORT INFORMATION
  Report Type: Spontaneous
  Country: LB (occurrence: LB)
  Receive Date: 20231104
  Receipt Date: 20231104
  Transmission Date: 20240109
  Serious: Yes (Life-Threatening, Other)
  Sender: FDA-Public Use
  Company Number: LB-MLMSERVICE-20231023-4615555-1

PATIENT
  Age: 65 Year
  Sex: Female

DRUGS (2)
  1. CARBOPLATIN [Suspect]
     Active Substance: CARBOPLATIN
     Indication: Ovarian cancer stage III
     Dosage: FIRST ADJUVANT CHEMOTHERAPY CYCLE
  2. PACLITAXEL [Suspect]
     Active Substance: PACLITAXEL
     Indication: Ovarian cancer stage III
     Dosage: FIRST ADJUVANT CHEMOTHERAPY CYCLE

REACTIONS (3)
  - Acute myeloid leukaemia [Unknown]
  - Thrombocytopenia [Unknown]
  - Neutropenia [Unknown]
